FAERS Safety Report 8961645 (Version 5)
Quarter: 2013Q2

REPORT INFORMATION
  Report Type: Report from Study
  Country: US (occurrence: US)
  Receive Date: 20121212
  Receipt Date: 20130501
  Transmission Date: 20140414
  Serious: No
  Sender: FDA-Public Use
  Company Number: US-VERTEX PHARMACEUTICALS INC.-2012-025802

PATIENT
  Age: 58 Year
  Sex: Female

DRUGS (10)
  1. VX-950 (TELAPREVIR) [Suspect]
     Indication: HEPATITIS C
     Dosage: UNK
     Route: 048
     Dates: start: 20120811, end: 20121103
  2. PEGASYS [Suspect]
     Indication: HEPATITIS C
     Dosage: UNK
     Dates: start: 20120811
  3. RIBAVIRIN [Suspect]
     Indication: HEPATITIS C
     Dosage: UNK
     Dates: start: 20120811
  4. VITAMIN D [Concomitant]
  5. ZESTORETIC [Concomitant]
  6. ALEVE [Concomitant]
  7. VIBRAMYCIN [Concomitant]
  8. CYMBALTA [Concomitant]
  9. ELAVIL [Concomitant]
  10. MULTIVITAMINS [Concomitant]

REACTIONS (4)
  - Cellulitis [Not Recovered/Not Resolved]
  - Rash erythematous [Recovered/Resolved]
  - Drug ineffective [Not Recovered/Not Resolved]
  - Pruritus [Unknown]
